FAERS Safety Report 5104170-1 (Version None)
Quarter: 2006Q3

REPORT INFORMATION
  Report Type: 
  Country: None (occurrence: None)
  Receive Date: 20060911
  Receipt Date: 20060822
  Transmission Date: 20061208
  Serious: Yes (Other)
  Sender: FDA-Public Use
  Company Number: FR200608004669

PATIENT
  Age: 76 Year
  Sex: Female

DRUGS (7)
  1. FORTEO [Suspect]
     Indication: OSTEOPOROSIS
     Dosage: 20 UG, DAILY (1/D), SUBCUTANEOUS
     Route: 058
     Dates: start: 20060408
  2. FORTEO PEN (250MCG/ML) (FORTE PEN 250MCG/ML (3ML)) [Concomitant]
  3. ANAFRANIL [Concomitant]
  4. URBANYL (CLOBAZAM) [Concomitant]
  5. MODOPAR (BENSERAZIDE HYDROCHLORIDE, LEVODOPA) [Concomitant]
  6. ARICEPT [Concomitant]
  7. ACETAMINOPHEN [Concomitant]

REACTIONS (4)
  - ANOREXIA [None]
  - CONDITION AGGRAVATED [None]
  - DEPRESSION [None]
  - WEIGHT DECREASED [None]
